FAERS Safety Report 17272403 (Version 1)
Quarter: 2020Q1

REPORT INFORMATION
  Report Type: Spontaneous
  Country: CN (occurrence: CN)
  Receive Date: 20200115
  Receipt Date: 20200115
  Transmission Date: 20200409
  Serious: Yes (Death, Other)
  Sender: FDA-Public Use
  Company Number: NVSC2020CN008310

PATIENT

DRUGS (2)
  1. FLUDARABINE PHOSPHATE. [Suspect]
     Active Substance: FLUDARABINE PHOSPHATE
     Indication: B-CELL LYMPHOMA
     Dosage: 30 MG/M2, QD
     Route: 065
  2. CYCLOPHOSPHAMIDE. [Suspect]
     Active Substance: CYCLOPHOSPHAMIDE
     Indication: B-CELL LYMPHOMA
     Dosage: 250 MG/M2, QD
     Route: 065

REACTIONS (11)
  - Neurotoxicity [Unknown]
  - Pleural effusion [Unknown]
  - B-cell lymphoma [Fatal]
  - Product use in unapproved indication [Unknown]
  - Capillary leak syndrome [Unknown]
  - Pyrexia [Fatal]
  - Cardio-respiratory arrest [Unknown]
  - Respiratory failure [Unknown]
  - Malignant neoplasm progression [Fatal]
  - Cytokine release syndrome [Fatal]
  - Shock [Unknown]
